FAERS Safety Report 4524578-2 (Version None)
Quarter: 2004Q4

REPORT INFORMATION
  Report Type: 
  Country: None (occurrence: None)
  Receive Date: 20041117
  Receipt Date: 20040629
  Transmission Date: 20050328
  Serious: Yes (Life-Threatening, Hospitalization)
  Sender: FDA-Public Use
  Company Number: US-JNJFOC-20040704862

PATIENT
  Age: 64 Year
  Sex: Male

DRUGS (7)
  1. LEVOFLOXACIN [Suspect]
     Indication: DRUG USE FOR UNKNOWN INDICATION
     Dosage: 500 MG, 1 IN 1 DAY
  2. ASPIRIN [Concomitant]
  3. CARDURA [Concomitant]
  4. METOPROLOL TARTRATE [Concomitant]
  5. PRAVACHOL [Concomitant]
  6. RAMIPRIL [Concomitant]
  7. YOHIMBINE (YOHIMBINE) [Concomitant]

REACTIONS (5)
  - CARDIO-RESPIRATORY ARREST [None]
  - ELECTROCARDIOGRAM QT PROLONGED [None]
  - TORSADE DE POINTES [None]
  - VENTRICULAR FIBRILLATION [None]
  - VENTRICULAR TACHYCARDIA [None]
